FAERS Safety Report 19100885 (Version 1)
Quarter: 2021Q2

REPORT INFORMATION
  Report Type: Spontaneous
  Country: IT (occurrence: IT)
  Receive Date: 20210407
  Receipt Date: 20210407
  Transmission Date: 20210717
  Serious: Yes (Other)
  Sender: FDA-Public Use
  Company Number: IT-ACCORD-222062

PATIENT
  Age: 48 Year
  Sex: Male
  Weight: 0 kg

DRUGS (2)
  1. CISPLATIN. [Suspect]
     Active Substance: CISPLATIN
     Indication: SQUAMOUS CELL CARCINOMA OF HEAD AND NECK
     Route: 042
     Dates: start: 20200818
  2. KEYTRUDA [Suspect]
     Active Substance: PEMBROLIZUMAB
     Indication: SQUAMOUS CELL CARCINOMA OF HEAD AND NECK
     Dosage: 50 MG POWDER FOR CONCENTRATE FOR SOLUTION FOR INFUSION
     Route: 042
     Dates: start: 20200818

REACTIONS (1)
  - Mucosal inflammation [Unknown]

NARRATIVE: CASE EVENT DATE: 20210217
